FAERS Safety Report 4934082-5 (Version None)
Quarter: 2006Q1

REPORT INFORMATION
  Report Type: 
  Country: None (occurrence: None)
  Receive Date: 20060303
  Receipt Date: 20060224
  Transmission Date: 20060701
  Serious: Yes (Death, Hospitalization)
  Sender: FDA-Public Use
  Company Number: 440004M06USA

PATIENT
  Age: 50 Year
  Sex: Male

DRUGS (12)
  1. SEROSTIM [Suspect]
     Indication: AIDS RELATED COMPLICATION
     Dosage: 3 MG, 1 IN 1 DAYS, SUBCUTANEOUS
     Route: 058
     Dates: start: 20060125, end: 20060208
  2. SEROSTIM [Suspect]
     Indication: CACHEXIA
     Dosage: 3 MG, 1 IN 1 DAYS, SUBCUTANEOUS
     Route: 058
     Dates: start: 20060125, end: 20060208
  3. REYATAC (ATAZANAVIR SULFATE) [Concomitant]
  4. NORVAR (RITONAVIR) [Concomitant]
  5. VIREAD [Concomitant]
  6. 3TC (LAMIVUDINE) [Concomitant]
  7. ACYCLOVIR (ACICLOVIR 00587301/1) [Concomitant]
  8. LOTENSIN [Concomitant]
  9. ASPIRIN [Concomitant]
  10. TRAZODONE HCL [Concomitant]
  11. ALLOPURINOL [Concomitant]
  12. PROZAC [Concomitant]

REACTIONS (2)
  - BRADYARRHYTHMIA [None]
  - DIABETIC HYPEROSMOLAR COMA [None]
